FAERS Safety Report 4440948-5 (Version None)
Quarter: 2004Q3

REPORT INFORMATION
  Report Type: 
  Country: None (occurrence: None)
  Receive Date: 20040728
  Receipt Date: 20040507
  Transmission Date: 20050211
  Serious: No
  Sender: FDA-Public Use
  Company Number: USA040464624

PATIENT
  Age: 7 Year
  Sex: Male
  Weight: 25 kg

DRUGS (2)
  1. STRATTERA [Suspect]
     Dosage: 18 MG DAY
     Dates: start: 20040409
  2. ADDERALL 10 [Concomitant]

REACTIONS (6)
  - ANOREXIA [None]
  - FEELING ABNORMAL [None]
  - SOCIAL AVOIDANT BEHAVIOUR [None]
  - STARING [None]
  - WEIGHT DECREASED [None]
  - YAWNING [None]
